FAERS Safety Report 8757685 (Version 5)
Quarter: 2014Q1

REPORT INFORMATION
  Report Type: Spontaneous
  Country: US (occurrence: US)
  Receive Date: 20120828
  Receipt Date: 20140324
  Transmission Date: 20141002
  Serious: Yes (Hospitalization, Disabling, Other)
  Sender: FDA-Public Use
  Company Number: US-009507513-1208USA009481

PATIENT
  Sex: Female
  Weight: 74.83 kg

DRUGS (5)
  1. FOSAMAX [Suspect]
     Indication: OSTEOPENIA
     Dosage: 70 MG, QW
     Route: 048
     Dates: start: 200704, end: 200912
  2. ALENDRONATE SODIUM [Suspect]
     Indication: OSTEOPOROSIS
  3. ALENDRONATE SODIUM [Suspect]
     Indication: OSTEOPOROSIS PROPHYLAXIS
  4. CALCIUM (UNSPECIFIED) [Concomitant]
     Dosage: UNK
     Dates: start: 2006, end: 20120712
  5. CELEBREX [Concomitant]
     Indication: FIBROMYALGIA
     Dosage: 200 MG, QD
     Route: 048
     Dates: end: 20120712

REACTIONS (30)
  - Femur fracture [Not Recovered/Not Resolved]
  - Bone density decreased [Unknown]
  - Osteoporosis [Unknown]
  - Stress fracture [Unknown]
  - Femur fracture [Unknown]
  - Adverse event [Unknown]
  - Adverse event [Unknown]
  - Cartilage injury [Unknown]
  - Tooth loss [Unknown]
  - Sleep apnoea syndrome [Unknown]
  - Pain [Unknown]
  - Nerve injury [Unknown]
  - Knee operation [Unknown]
  - Hormone level abnormal [Unknown]
  - Fatigue [Unknown]
  - Essential hypertension [Unknown]
  - Hypercholesterolaemia [Unknown]
  - Intervertebral disc degeneration [Unknown]
  - Fibrocystic breast disease [Unknown]
  - Depression [Unknown]
  - Radius fracture [Recovering/Resolving]
  - Lumbar radiculopathy [Unknown]
  - Bursitis [Unknown]
  - Sinus disorder [Unknown]
  - Fall [Unknown]
  - Epicondylitis [Unknown]
  - Meniscus injury [Unknown]
  - Abdominal pain [Unknown]
  - Arthralgia [Unknown]
  - Myalgia [Unknown]
